FAERS Safety Report 9552805 (Version 1)
Quarter: 2013Q2

REPORT INFORMATION
  Report Type: Spontaneous
  Country: US (occurrence: None)
  Receive Date: 20130606
  Receipt Date: 20130606
  Transmission Date: 20140414
  Serious: No
  Sender: FDA-Public Use
  Company Number: 2013PROUSA02766

PATIENT
  Age: 82 Year
  Sex: Male
  Weight: 72.6 kg

DRUGS (2)
  1. PROVENGE [Suspect]
     Indication: PROSTATE CANCER METASTATIC
     Dosage: 250 ML, SINGLE, INTRAVENOUS
     Route: 042
     Dates: start: 20130411, end: 20130411
  2. BENICAR (OLMESARTAN MEDOXOMIL) [Concomitant]

REACTIONS (1)
  - Hypotension [None]
